FAERS Safety Report 17203550 (Version 1)
Quarter: 2019Q4

REPORT INFORMATION
  Report Type: Spontaneous
  Country: US (occurrence: US)
  Receive Date: 20191226
  Receipt Date: 20191226
  Transmission Date: 20200122
  Serious: No
  Sender: FDA-Public Use
  Company Number: US-CATALYST PHARMACEUTICALS, INC-2019CAT00446

PATIENT
  Age: 46 Year
  Sex: Female
  Weight: 71.2 kg

DRUGS (17)
  1. MIDODRINE [Concomitant]
     Active Substance: MIDODRINE
     Dosage: 10 MG, 1X/DAY (EVENING)
     Route: 048
  2. IMURAN [Concomitant]
     Active Substance: AZATHIOPRINE
     Dosage: 100 MG, 1X/DAY (NIGHT)
     Route: 048
  3. MIDODRINE [Concomitant]
     Active Substance: MIDODRINE
     Dosage: 15 MG, 1X/DAY (MORNING)
     Route: 048
  4. LAMICTAL [Concomitant]
     Active Substance: LAMOTRIGINE
  5. AJOVY [Concomitant]
     Active Substance: FREMANEZUMAB-VFRM
     Dosage: UNK, 4X/YEAR (EVERY 3 MONTHS)
  6. IVIG INFUSION [Concomitant]
     Active Substance: HUMAN IMMUNOGLOBULIN G
     Dosage: UNK, EVERY 3 WEEKS
     Route: 042
  7. MORPHINE IR [Concomitant]
     Active Substance: MORPHINE
     Dosage: 15 MG, 2X/DAY
     Route: 048
  8. ISOSORBIDE NITRATE [Concomitant]
     Active Substance: ISOSORBIDE MONONITRATE
     Dosage: 30 MG, 2X/DAY
     Route: 048
  9. SERTRALINE [Concomitant]
     Active Substance: SERTRALINE HYDROCHLORIDE
     Dosage: 50 MG, 1X/DAY
     Route: 048
  10. FIRDAPSE [Suspect]
     Active Substance: AMIFAMPRIDINE
     Dosage: 10 MG, 1X/DAY (EVENING)
     Route: 048
     Dates: start: 201904
  11. NADOLOL. [Concomitant]
     Active Substance: NADOLOL
     Dosage: 5 MG, 1X/DAY (EVENING)
     Route: 048
  12. ELIQUIS [Concomitant]
     Active Substance: APIXABAN
     Dosage: 5 MG, 2X/DAY
     Route: 048
  13. MYOBLOC [Concomitant]
     Active Substance: RIMABOTULINUMTOXINB
     Dosage: UNK EVERY 10 WEEKS
  14. FIRDAPSE [Suspect]
     Active Substance: AMIFAMPRIDINE
     Indication: MYASTHENIC SYNDROME
     Dosage: 20 MG, 1X/DAY (MORNING)
     Route: 048
     Dates: start: 201904
  15. PREDNISONE. [Concomitant]
     Active Substance: PREDNISONE
     Dosage: 10 MG, 1X/DAY (MORNING)
     Route: 048
  16. NADOLOL. [Concomitant]
     Active Substance: NADOLOL
     Dosage: 20 MG, 1X/DAY (MORNING)
     Route: 048
  17. ONDANSETRON [Concomitant]
     Active Substance: ONDANSETRON
     Dosage: 8 MG, AS NEEDED

REACTIONS (6)
  - Cough [Not Recovered/Not Resolved]
  - Bronchitis [Recovering/Resolving]
  - Abdominal pain upper [Not Recovered/Not Resolved]
  - Hyperhidrosis [Not Recovered/Not Resolved]
  - Paraesthesia oral [Not Recovered/Not Resolved]
  - Body temperature increased [Not Recovered/Not Resolved]

NARRATIVE: CASE EVENT DATE: 201908
